FAERS Safety Report 10241104 (Version 2)
Quarter: 2014Q3

REPORT INFORMATION
  Report Type: Spontaneous
  Country: US (occurrence: None)
  Receive Date: 20140613
  Receipt Date: 20140703
  Transmission Date: 20150326
  Serious: Yes (Other)
  Sender: FDA-Public Use
  Company Number: UTC-045031

PATIENT
  Age: 70 Year
  Sex: Female
  Weight: 80.7 kg

DRUGS (5)
  1. TYVASO [Suspect]
     Active Substance: TREPROSTINIL
     Indication: COR PULMONALE CHRONIC
     Route: 055
     Dates: start: 20101227
  2. TRACLEER [Concomitant]
     Active Substance: BOSENTAN\BOSENTAN MONOHYDRATE
  3. REVATIO (SILDENAFIL CITRATE) UNKNOWN [Concomitant]
  4. TYVASO [Suspect]
     Active Substance: TREPROSTINIL
     Indication: POISONING
     Route: 055
     Dates: start: 20101227
  5. ADEMPAS [Concomitant]
     Active Substance: RIOCIGUAT

REACTIONS (5)
  - Colon cancer [None]
  - Abdominal discomfort [None]
  - Weight decreased [None]
  - Blood iron decreased [None]
  - Haemoglobin decreased [None]
